FAERS Safety Report 6875586-8 (Version None)
Quarter: 2010Q3

REPORT INFORMATION
  Report Type: 
  Country: None (occurrence: None)
  Receive Date: 20100727
  Receipt Date: 20100717
  Transmission Date: 20110219
  Serious: Yes (Hospitalization, Other)
  Sender: FDA-Public Use
  Company Number: FR-JNJFOC-20100705590

PATIENT
  Age: 16 Month
  Sex: Female

DRUGS (10)
  1. LEUSTAT [Suspect]
     Indication: LANGERHANS' CELL HISTIOCYTOSIS
     Route: 042
  2. LEUSTAT [Suspect]
     Route: 042
  3. CYTARABINE [Suspect]
     Indication: LANGERHANS' CELL HISTIOCYTOSIS
     Route: 042
  4. VINBLASTINE SULFATE [Suspect]
     Indication: LANGERHANS' CELL HISTIOCYTOSIS
     Route: 065
  5. CORTICOSTEROIDS [Suspect]
     Indication: LANGERHANS' CELL HISTIOCYTOSIS
     Route: 065
  6. ETOPOSIDE [Suspect]
     Indication: LANGERHANS' CELL HISTIOCYTOSIS
     Dosage: RECEIVED 6 PULSES
     Route: 065
  7. ANTITHYMOCYTE IMMUNOGLOBULIN [Suspect]
     Indication: LANGERHANS' CELL HISTIOCYTOSIS
     Route: 065
  8. SULFAMETHOXAZOLE AND TRIMETHOPRIM [Concomitant]
     Indication: ANTIFUNGAL PROPHYLAXIS
     Route: 065
  9. ANTI-EMETICS [Concomitant]
     Indication: VOMITING
     Route: 065
  10. NEUPOGEN [Concomitant]
     Indication: PRODUCT USED FOR UNKNOWN INDICATION
     Route: 065

REACTIONS (5)
  - ADVERSE EVENT [None]
  - DRUG EFFECT DECREASED [None]
  - NEURALGIA [None]
  - NEUTROPENIA [None]
  - PYREXIA [None]
